FAERS Safety Report 9840180 (Version 1)
Quarter: 2013Q4

REPORT INFORMATION
  Report Type: Spontaneous
  Country: US (occurrence: None)
  Receive Date: 20131209
  Receipt Date: 20131209
  Transmission Date: 20140711
  Serious: Yes (Hospitalization, Other)
  Sender: FDA-Public Use
  Company Number: ALL1-2013-05413

PATIENT
  Age: 77 Year
  Sex: Male
  Weight: 80.7 kg

DRUGS (3)
  1. ADDERALL XR [Suspect]
     Indication: FATIGUE
     Dosage: 10 MG, UNKNOWN, ORAL
     Route: 048
  2. TESTIM [Suspect]
     Indication: BLOOD TESTOSTERONE DECREASED
     Dosage: 5 G, 1X/DAY:QD (TESTIM 1% ONE TUBE DAILY; 5 G PER TUBE), TOPICAL
     Route: 061
  3. METFORMIN (METFORMIN) [Concomitant]

REACTIONS (2)
  - Myocardial infarction [None]
  - Off label use [None]
